FAERS Safety Report 16109065 (Version 1)
Quarter: 2019Q1

REPORT INFORMATION
  Report Type: Spontaneous
  Country: US (occurrence: US)
  Receive Date: 20190323
  Receipt Date: 20190323
  Transmission Date: 20190418
  Serious: No
  Sender: FDA-Public Use
  Company Number: US-THERAPEUTICSMD-2019TMD00088

PATIENT
  Age: 74 Year
  Sex: Female
  Weight: 72.56 kg

DRUGS (2)
  1. IMVEXXY [Suspect]
     Active Substance: ESTRADIOL
     Indication: VULVOVAGINAL DRYNESS
     Dosage: 10 ?G
     Route: 067
  2. IMVEXXY [Suspect]
     Active Substance: ESTRADIOL
     Indication: VULVOVAGINAL PRURITUS
     Dosage: 10 ?G
     Route: 067
     Dates: start: 2018

REACTIONS (11)
  - Product administered at inappropriate site [Unknown]
  - Heart rate irregular [Unknown]
  - Cardiac disorder [Unknown]
  - Dyspnoea [Recovered/Resolved]
  - Off label use [Not Recovered/Not Resolved]
  - Chest pain [Unknown]
  - Product physical issue [Unknown]
  - Incorrect dose administered [Unknown]
  - Palpitations [Unknown]
  - Cardiac stress test abnormal [Unknown]
  - Oedema [Unknown]

NARRATIVE: CASE EVENT DATE: 2018
